FAERS Safety Report 7617751-8 (Version None)
Quarter: 2011Q3

REPORT INFORMATION
  Report Type: 
  Country: None (occurrence: None)
  Receive Date: 20110718
  Receipt Date: 20110705
  Transmission Date: 20111222
  Serious: Yes (Hospitalization)
  Sender: FDA-Public Use
  Company Number: ES-JNJFOC-20110701957

PATIENT
  Age: 71 Year
  Sex: Female
  Weight: 90 kg

DRUGS (2)
  1. REMICADE [Suspect]
     Indication: SPONDYLOARTHROPATHY
     Dosage: DOSE REPORTED AS ^5^
     Route: 042
     Dates: start: 20110301, end: 20110413
  2. REMICADE [Suspect]
     Indication: PSORIATIC ARTHROPATHY
     Dosage: DOSE REPORTED AS ^5^
     Route: 042
     Dates: start: 20110301, end: 20110413

REACTIONS (1)
  - COLON NEOPLASM [None]
